FAERS Safety Report 5162400-4 (Version None)
Quarter: 2006Q4

REPORT INFORMATION
  Report Type: 
  Country: None (occurrence: None)
  Receive Date: 20061128
  Receipt Date: 20061128
  Transmission Date: 20070319
  Serious: Yes (Other)
  Sender: FDA-Public Use
  Company Number: None

PATIENT
  Age: 49 Year
  Sex: Female
  Weight: 86.1834 kg

DRUGS (7)
  1. ZANAFLEX [Suspect]
     Indication: MULTIPLE SCLEROSIS
     Dosage: 4 MG PO PRN QHS
     Route: 048
     Dates: start: 20060517, end: 20061115
  2. ZANAFLEX [Suspect]
     Indication: MUSCLE SPASMS
     Dosage: 4 MG PO PRN QHS
     Route: 048
     Dates: start: 20060517, end: 20061115
  3. COPAXONE [Concomitant]
  4. PROZAC [Concomitant]
  5. NEURONTIN [Concomitant]
  6. MECLIZINE [Concomitant]
  7. PRILOSEC [Concomitant]

REACTIONS (1)
  - HALLUCINATION, VISUAL [None]
